FAERS Safety Report 19082748 (Version 1)
Quarter: 2021Q2

REPORT INFORMATION
  Report Type: Spontaneous
  Country: US (occurrence: US)
  Receive Date: 20210401
  Receipt Date: 20210401
  Transmission Date: 20210717
  Serious: No
  Sender: FDA-Public Use
  Company Number: None

PATIENT
  Age: 24 Year
  Sex: Male
  Weight: 65.25 kg

DRUGS (1)
  1. DOXYCYCLINE HYCLATE 100MG CAPS [Suspect]
     Active Substance: DOXYCYCLINE HYCLATE
     Indication: ACNE
     Dosage: ?          QUANTITY:1 CAPSULE(S);?
     Route: 048
     Dates: start: 20210305

REACTIONS (3)
  - Suicidal behaviour [None]
  - Sleep disorder [None]
  - Psychotic disorder [None]

NARRATIVE: CASE EVENT DATE: 20210312
